FAERS Safety Report 20826916 (Version 1)
Quarter: 2022Q2

REPORT INFORMATION
  Report Type: Spontaneous
  Country: US (occurrence: None)
  Receive Date: 20220513
  Receipt Date: 20220513
  Transmission Date: 20220721
  Serious: Yes (Hospitalization)
  Sender: FDA-Public Use
  Company Number: None

PATIENT
  Sex: Male
  Weight: 79.02 kg

DRUGS (2)
  1. AZACITIDINE [Suspect]
     Active Substance: AZACITIDINE
  2. VENETOCLAX [Concomitant]
     Active Substance: VENETOCLAX

REACTIONS (7)
  - Tonsillitis [None]
  - Oesophagitis [None]
  - Stomatitis [None]
  - Swelling [None]
  - Platelet count decreased [None]
  - Neutropenia [None]
  - Anaemia [None]

NARRATIVE: CASE EVENT DATE: 20220510
